FAERS Safety Report 20612771 (Version 1)
Quarter: 2022Q1

REPORT INFORMATION
  Report Type: Spontaneous
  Country: US (occurrence: US)
  Receive Date: 20220318
  Receipt Date: 20220318
  Transmission Date: 20220423
  Serious: No
  Sender: FDA-Public Use
  Company Number: US-PFIZER INC-202200016674

PATIENT
  Age: 61 Year
  Sex: Female

DRUGS (5)
  1. IBRANCE [Suspect]
     Active Substance: PALBOCICLIB
     Dosage: 125 MG, CYCLIC, (1 DAILY FOR 21 DAYS)
     Dates: start: 20220103
  2. CRANBERRY [Concomitant]
     Active Substance: CRANBERRY
     Dosage: 200 MG,
  3. FASLODEX [Concomitant]
     Active Substance: FULVESTRANT
     Dosage: 250 MG,
  4. DIETARY SUPPLEMENT [Concomitant]
     Active Substance: DIETARY SUPPLEMENT
     Dosage: 600 MG, UNK
  5. XGEVA [Concomitant]
     Active Substance: DENOSUMAB
     Dosage: 120 MG

REACTIONS (8)
  - Bone pain [Not Recovered/Not Resolved]
  - Pain [Not Recovered/Not Resolved]
  - Neoplasm progression [Unknown]
  - Nausea [Not Recovered/Not Resolved]
  - Fatigue [Not Recovered/Not Resolved]
  - Fatigue [Not Recovered/Not Resolved]
  - Asthenia [Not Recovered/Not Resolved]
  - Vomiting [Not Recovered/Not Resolved]

NARRATIVE: CASE EVENT DATE: 20220101
